FAERS Safety Report 4446566-7 (Version None)
Quarter: 2004Q3

REPORT INFORMATION
  Report Type: 
  Country: None (occurrence: None)
  Receive Date: 20040902
  Receipt Date: 20040824
  Transmission Date: 20050211
  Serious: Yes (Life-Threatening, Hospitalization)
  Sender: FDA-Public Use
  Company Number: USA-2004-0015482

PATIENT
  Age: 30 Year
  Sex: Female

DRUGS (2)
  1. CEFDITOREN PIVOXIL (SIMILAR TO NDA 21-222) (CEFDITOREN PIVOXIL) [Suspect]
     Indication: INFECTION PROPHYLAXIS
     Dosage: 100 MG, TID, ORAL
     Route: 048
     Dates: start: 20030708, end: 20030712
  2. CEFDITOREN PIVOXIL (SIMILAR TO NDA 21-222) (CEFDITOREN PIVOXIL) [Suspect]
     Indication: POSTPARTUM DISORDER
     Dosage: 100 MG, TID, ORAL
     Route: 048
     Dates: start: 20030708, end: 20030712

REACTIONS (11)
  - BLOOD PRESSURE SYSTOLIC DECREASED [None]
  - CARDIOGENIC SHOCK [None]
  - DRUG ERUPTION [None]
  - ELECTROCARDIOGRAM ST SEGMENT ELEVATION [None]
  - EOSINOPHILIC MYOCARDITIS [None]
  - HYPERSENSITIVITY [None]
  - PERICARDIAL EFFUSION [None]
  - PERICARDITIS [None]
  - THERAPY NON-RESPONDER [None]
  - VENTRICULAR WALL THICKENING [None]
  - WHITE BLOOD CELL COUNT INCREASED [None]
